FAERS Safety Report 8578231-9 (Version None)
Quarter: 2012Q3

REPORT INFORMATION
  Report Type: 
  Country: None (occurrence: None)
  Receive Date: 20120808
  Receipt Date: 20120801
  Transmission Date: 20120928
  Serious: Yes (Death)
  Sender: FDA-Public Use
  Company Number: US-CELGENEUS-163-21880-12063373

PATIENT
  Sex: Female
  Weight: 93.161 kg

DRUGS (22)
  1. LANTUS [Concomitant]
     Dosage: 60 IU (INTERNATIONAL UNIT)
     Route: 058
  2. NOVOLOG [Concomitant]
     Dosage: 4 IU (INTERNATIONAL UNIT)
     Route: 058
  3. PERCOCET [Concomitant]
     Indication: PAIN
     Dosage: 5MG-325MG
     Route: 048
  4. DEXAMETHASONE [Concomitant]
     Dosage: 40 MILLIGRAM
     Route: 048
  5. DEXAMETHASONE [Concomitant]
     Dosage: 20 MILLIGRAM
     Route: 048
     Dates: start: 20110726
  6. BORTEZOMIB [Concomitant]
     Dosage: 2.6 MILLIGRAM
     Route: 041
     Dates: start: 20110926
  7. KYTRIL [Concomitant]
     Dosage: 1000 MICROGRAM
     Route: 065
  8. OMEPRAZOLE [Concomitant]
     Dosage: 40 MILLIGRAM
     Route: 048
  9. RISPERIDONE [Concomitant]
     Dosage: 2 MILLIGRAM
     Route: 048
  10. OXYCONTIN [Concomitant]
     Dosage: 20 MILLIGRAM
     Route: 048
     Dates: start: 20110425
  11. AMLODIPINE BESYLATE [Concomitant]
     Dosage: 10 MILLIGRAM
     Route: 048
  12. ATIVAN [Concomitant]
     Dosage: 1 MILLIGRAM
     Route: 048
     Dates: start: 20110204
  13. GABAPENTIN [Concomitant]
     Dosage: 1200 MILLIGRAM
     Route: 048
  14. INDAPAMIDE [Concomitant]
     Dosage: 1.25 MILLIGRAM
     Route: 048
  15. LEVAQUIN [Concomitant]
     Dosage: 500 MILLIGRAM
     Route: 048
     Dates: start: 20110708, end: 20110101
  16. AMBIEN [Concomitant]
     Dosage: 10 MILLIGRAM
     Route: 048
  17. ATENOLOL [Concomitant]
     Dosage: 50 MILLIGRAM
     Route: 048
  18. CODEINE W/GUAIFENESIN [Concomitant]
     Dosage: 5 MILLILITER
     Route: 048
  19. REVLIMID [Suspect]
     Indication: MULTIPLE MYELOMA
     Dosage: 25 MILLIGRAM
     Route: 048
     Dates: start: 20110207, end: 20110101
  20. REVLIMID [Suspect]
     Dosage: 25 MILLIGRAM
     Route: 048
     Dates: start: 20111121, end: 20110101
  21. ASPIRIN [Concomitant]
     Dosage: 325 MILLIGRAM
     Route: 048
  22. DIAZEPAM [Concomitant]
     Dosage: 2 MILLIGRAM
     Route: 048
     Dates: start: 20110204

REACTIONS (1)
  - MYOCARDIAL INFARCTION [None]
